FAERS Safety Report 9344024 (Version 2)
Quarter: 2013Q4

REPORT INFORMATION
  Report Type: Spontaneous
  Country: GB (occurrence: GB)
  Receive Date: 20130612
  Receipt Date: 20131107
  Transmission Date: 20140711
  Serious: Yes (Hospitalization, Disabling)
  Sender: FDA-Public Use
  Company Number: GB-BAYER-2013-068807

PATIENT
  Sex: Female
  Weight: 50.8 kg

DRUGS (13)
  1. CIPROFLOXACIN [Suspect]
     Indication: LOWER RESPIRATORY TRACT INFECTION
     Dosage: 500 MG, BID
     Route: 048
     Dates: start: 20130425, end: 20130503
  2. ASPIRIN [Concomitant]
     Dosage: 75 MG, QD
  3. BISOPROLOL [Concomitant]
     Dosage: 1.25 MG, QD
  4. CO-AMILOFRUSE [Concomitant]
     Dosage: 1 DF, QD
  5. FLECAINIDE [Concomitant]
     Dosage: 50 MG, UNK
  6. LEVOTHYROXINE [Concomitant]
     Dosage: 25 ?G, QD
  7. SERETIDE [Concomitant]
  8. ZOPICLONE [Concomitant]
     Dosage: 3.7 MG, QD
  9. CETRABEN [Concomitant]
     Dosage: 500 G, PRN
     Route: 061
  10. CLENIL [Concomitant]
     Dosage: 100 ?G, BID
  11. IBANDRONIC ACID [Concomitant]
     Dosage: 150 MG, THREE IN ONE MONTH
  12. LOPERAMIDE HYDROCHLORIDE [Concomitant]
     Dosage: 2 MG, BID
  13. VENTOLIN [Concomitant]
     Dosage: 100 ?G, PRN
     Route: 055

REACTIONS (3)
  - Tendonitis [Recovering/Resolving]
  - Contusion [Unknown]
  - Mobility decreased [Unknown]
